FAERS Safety Report 7707428-2 (Version None)
Quarter: 2011Q3

REPORT INFORMATION
  Report Type: 
  Country: None (occurrence: None)
  Receive Date: 20110824
  Receipt Date: 20100729
  Transmission Date: 20111222
  Serious: No
  Sender: FDA-Public Use
  Company Number: US-PFIZER INC-2010034611

PATIENT
  Weight: 101 kg

DRUGS (2)
  1. NAVANE [Suspect]
     Dosage: 2 MG, 1X/DAY
     Route: 048
     Dates: start: 20100202
  2. SINEMET [Concomitant]
     Indication: PARKINSON'S DISEASE
     Dosage: 500/200MG X3 DAILY
     Route: 048

REACTIONS (3)
  - TREMOR [None]
  - MUSCULAR WEAKNESS [None]
  - ASTHENIA [None]
